FAERS Safety Report 19489181 (Version 1)
Quarter: 2021Q3

REPORT INFORMATION
  Report Type: Spontaneous
  Country: AU (occurrence: AU)
  Receive Date: 20210703
  Receipt Date: 20210703
  Transmission Date: 20211014
  Serious: Yes (Hospitalization, Other)
  Sender: FDA-Public Use
  Company Number: AU-MACLEODS PHARMACEUTICALS US LTD-MAC2021031025

PATIENT

DRUGS (3)
  1. RAMIPRIL. [Concomitant]
     Active Substance: RAMIPRIL
     Indication: PRODUCT USED FOR UNKNOWN INDICATION
     Dosage: 2.5 MILLIGRAM, QD
     Route: 065
  2. PRAMIPEXOLE [PRAMIPEXOLE DIHYDROCHLORIDE] [Suspect]
     Active Substance: PRAMIPEXOLE DIHYDROCHLORIDE
     Indication: PARKINSON^S DISEASE
     Dosage: 1.5 MILLIGRAM, QD, MODIFIED RELEASE
     Route: 065
  3. LEVODOPA/BENSERAZIDE [Interacting]
     Active Substance: BENSERAZIDE\LEVODOPA
     Indication: PARKINSON^S DISEASE
     Dosage: 1 DOSAGE FORM, TID
     Route: 065

REACTIONS (2)
  - Drug interaction [Recovered/Resolved]
  - Oedema peripheral [Recovered/Resolved]
